FAERS Safety Report 24580089 (Version 4)
Quarter: 2025Q1

REPORT INFORMATION
  Report Type: Spontaneous
  Country: GB (occurrence: GB)
  Receive Date: 20241105
  Receipt Date: 20250319
  Transmission Date: 20250408
  Serious: No
  Sender: PFIZER
  Company Number: GB-PFIZER INC-PV202400140124

PATIENT
  Age: 7 Year
  Sex: Female

DRUGS (1)
  1. GENOTROPIN [Suspect]
     Active Substance: SOMATROPIN
     Indication: Growth hormone deficiency
     Dosage: 0.8 MG, DAILY
     Route: 058
     Dates: start: 202306

REACTIONS (1)
  - Device deployment issue [Unknown]
